FAERS Safety Report 6238095-5 (Version None)
Quarter: 2009Q2

REPORT INFORMATION
  Report Type: 
  Country: None (occurrence: None)
  Receive Date: 20090617
  Receipt Date: 20090608
  Transmission Date: 20091009
  Serious: Yes (Hospitalization)
  Sender: FDA-Public Use
  Company Number: ADR3732009

PATIENT
  Age: 69 Year
  Sex: Male

DRUGS (8)
  1. SIMVASTATIN [Suspect]
     Indication: HYPERLIPIDAEMIA
     Dosage: 40 MG, ORAL
     Route: 048
     Dates: start: 20060101
  2. AMLODIPINE [Suspect]
     Indication: HYPERTENSION
     Dosage: 5 MG, ORAL
     Route: 048
  3. FALITHROM                 (PHENPROCOUMON) [Concomitant]
  4. BISOPROLOL 2.5 MG [Concomitant]
  5. INSULIN PROTAPHAN HUMAN 26-0-4 IU [Concomitant]
  6. RAMIPRIL 5 [Concomitant]
  7. TORASEMIDE 10 MG [Concomitant]
  8. ACETYLSALICVLIC ACID 100 MG [Concomitant]

REACTIONS (2)
  - DRUG INTERACTION [None]
  - GASTROINTESTINAL HAEMORRHAGE [None]
